FAERS Safety Report 9151910 (Version 1)
Quarter: 2013Q1

REPORT INFORMATION
  Report Type: Spontaneous
  Country: US (occurrence: US)
  Receive Date: 20130308
  Receipt Date: 20130308
  Transmission Date: 20140127
  Serious: Yes (Disabling, Congenital Anomaly)
  Sender: FDA-Public Use
  Company Number: US-ABBOTT-13P-163-1058877-00

PATIENT
  Sex: Female

DRUGS (1)
  1. DEPAKOTE [Suspect]
     Indication: MATERNAL EXPOSURE TIMING UNSPECIFIED
     Route: 064

REACTIONS (15)
  - Foetal anticonvulsant syndrome [Unknown]
  - Congenital corneal anomaly [Unknown]
  - Arnold-Chiari malformation [Unknown]
  - Microencephaly [Unknown]
  - Growth retardation [Unknown]
  - Dysmorphism [Unknown]
  - Cognitive disorder [Unknown]
  - Congenital musculoskeletal anomaly [Unknown]
  - Congenital anomaly [Unknown]
  - Speech disorder developmental [Unknown]
  - Neonatal behavioural syndrome [Unknown]
  - Foetal exposure during pregnancy [Unknown]
  - Limb malformation [Not Recovered/Not Resolved]
  - Organ failure [Not Recovered/Not Resolved]
  - Activities of daily living impaired [Not Recovered/Not Resolved]
